FAERS Safety Report 8496633-6 (Version None)
Quarter: 2012Q3

REPORT INFORMATION
  Report Type: 
  Country: None (occurrence: None)
  Receive Date: 20120709
  Receipt Date: 20120629
  Transmission Date: 20120928
  Serious: Yes (Other)
  Sender: FDA-Public Use
  Company Number: US-ASTRAZENECA-2012SE44658

PATIENT
  Sex: Female

DRUGS (7)
  1. IBUPROFEN (ADVIL) [Concomitant]
  2. ALEVE [Concomitant]
  3. SYMBICORT [Suspect]
     Route: 055
  4. MOTRIN [Concomitant]
  5. ACETAMINOPHEN [Concomitant]
  6. HORMONE REPLACEMENT THERAPY [Concomitant]
  7. ACETAMINOPHEN [Concomitant]

REACTIONS (12)
  - HYPERTENSION [None]
  - HYPOTHYROIDISM [None]
  - INTENTIONAL DRUG MISUSE [None]
  - GLAUCOMA [None]
  - BRONCHITIS CHRONIC [None]
  - ARTHRITIS [None]
  - DIABETES MELLITUS [None]
  - DEPRESSION [None]
  - BLOOD CHOLESTEROL INCREASED [None]
  - EPILEPSY [None]
  - ASTHMA [None]
  - GASTROOESOPHAGEAL REFLUX DISEASE [None]
